FAERS Safety Report 11272074 (Version 1)
Quarter: 2015Q3

REPORT INFORMATION
  Report Type: Spontaneous
  Country: US (occurrence: None)
  Receive Date: 20150713
  Receipt Date: 20150713
  Transmission Date: 20151125
  Serious: Yes (Disabling)
  Sender: FDA-Public Use
  Company Number: None

PATIENT
  Age: 25 Year
  Sex: Male
  Weight: 86.18 kg

DRUGS (2)
  1. LORATADINE. [Suspect]
     Active Substance: LORATADINE
     Indication: HISTAMINE INTOLERANCE
     Dates: start: 20120731, end: 20150705
  2. LORATADINE 10 MG [Concomitant]

REACTIONS (2)
  - Confusional state [None]
  - Panic attack [None]

NARRATIVE: CASE EVENT DATE: 20150705
